FAERS Safety Report 23931831 (Version 2)
Quarter: 2024Q2

REPORT INFORMATION
  Report Type: Spontaneous
  Country: US (occurrence: US)
  Receive Date: 20240603
  Receipt Date: 20240604
  Transmission Date: 20240716
  Serious: Yes (Life-Threatening, Hospitalization, Other)
  Sender: FDA-Public Use
  Company Number: US-AUROBINDO-AUR-APL-2024-026345

PATIENT
  Age: 14 Year
  Sex: Female

DRUGS (1)
  1. VERAPAMIL HYDROCHLORIDE [Suspect]
     Active Substance: VERAPAMIL HYDROCHLORIDE
     Indication: Product used for unknown indication
     Dosage: 4080 MILLIGRAM (APPROXIMATELY)
     Route: 048

REACTIONS (9)
  - Distributive shock [Recovering/Resolving]
  - Intentional overdose [Recovering/Resolving]
  - Toxicity to various agents [Recovering/Resolving]
  - Atrioventricular block [Recovering/Resolving]
  - Bradycardia [Recovering/Resolving]
  - Hyperglycaemia [Recovering/Resolving]
  - Hypotension [Recovering/Resolving]
  - Intentional product misuse [Unknown]
  - Overdose [Unknown]
